FAERS Safety Report 7539577-6 (Version None)
Quarter: 2011Q2

REPORT INFORMATION
  Report Type: 
  Country: None (occurrence: None)
  Receive Date: 20110609
  Receipt Date: 20110609
  Transmission Date: 20111010
  Serious: Yes (Other)
  Sender: FDA-Public Use
  Company Number: None

PATIENT
  Sex: Male
  Weight: 61.2356 kg

DRUGS (1)
  1. NAPHAZOLINE HCL [Suspect]
     Indication: EYE PRURITUS
     Dosage: ONE DROP ONCE TOP
     Route: 061
     Dates: start: 20110524, end: 20110524

REACTIONS (2)
  - BLISTER [None]
  - EYE DISORDER [None]
